FAERS Safety Report 7231658-X (Version None)
Quarter: 2011Q1

REPORT INFORMATION
  Report Type: 
  Country: None (occurrence: None)
  Receive Date: 20110118
  Receipt Date: 20110110
  Transmission Date: 20110831
  Serious: Yes (Hospitalization)
  Sender: FDA-Public Use
  Company Number: US-ASTRAZENECA-2011SE01603

PATIENT
  Age: 78 Year
  Sex: Male

DRUGS (5)
  1. SEROQUEL [Suspect]
     Indication: DEPRESSION
     Route: 048
     Dates: start: 20110101
  2. SEROQUEL [Suspect]
     Indication: AMNESIA
     Route: 048
     Dates: start: 20110101
  3. LORAZEPAM [Concomitant]
     Dosage: TID
  4. SEROQUEL [Suspect]
     Route: 048
     Dates: start: 20110101
  5. SEROQUEL [Suspect]
     Route: 048
     Dates: start: 20110101

REACTIONS (3)
  - ANGER [None]
  - AGGRESSION [None]
  - INSOMNIA [None]
